FAERS Safety Report 10978136 (Version 4)
Quarter: 2015Q3

REPORT INFORMATION
  Report Type: Spontaneous
  Country: US (occurrence: US)
  Receive Date: 20150402
  Receipt Date: 20150702
  Transmission Date: 20151125
  Serious: Yes (Hospitalization, Other)
  Sender: FDA-Public Use
  Company Number: US-PFIZER INC-2015112520

PATIENT
  Age: 66 Year
  Sex: Male
  Weight: 68 kg

DRUGS (15)
  1. COUMADIN [Concomitant]
     Active Substance: WARFARIN SODIUM
     Dosage: 5 MG, DAILY (TAKE 2.5 MG TODAY)
     Route: 048
  2. VITAMIN B12 [Concomitant]
     Active Substance: CYANOCOBALAMIN
     Dosage: 100 ?G, DAILY
     Route: 048
  3. TAURINE [Concomitant]
     Active Substance: TAURINE
     Dosage: 1000 MG, DAILY
     Route: 048
  4. MELATONIN [Concomitant]
     Active Substance: MELATONIN
     Dosage: 3 MG, UNK (AT BEDTIME)
     Route: 048
  5. TIKOSYN [Suspect]
     Active Substance: DOFETILIDE
     Indication: ATRIAL FIBRILLATION
     Dosage: 250 ?G, 2X/DAY
     Route: 048
     Dates: start: 20150311
  6. TIKOSYN [Suspect]
     Active Substance: DOFETILIDE
     Dosage: 250 ?G, DAILY
     Route: 048
     Dates: start: 20150313
  7. KLOR-CON M10 [Concomitant]
     Active Substance: POTASSIUM CHLORIDE
     Dosage: 10 MEQ, 1X/DAY
     Route: 048
  8. COENZYME Q10 [Concomitant]
     Active Substance: UBIDECARENONE
     Dosage: 2 DF, DAILY (100 MG CAP)
     Route: 048
  9. MAG-OXIDE [Concomitant]
     Dosage: 400 MG, DAILY
     Route: 048
  10. TYLENOL [Concomitant]
     Active Substance: ACETAMINOPHEN
     Indication: PAIN
     Dosage: 650 MG, AS NEEDED (Q4H PRN)
     Route: 048
  11. COENZYME Q10 [Concomitant]
     Active Substance: UBIDECARENONE
     Dosage: 100 MG, 1X/DAY
     Route: 048
  12. L-ARGININE HCL [Concomitant]
     Dosage: 1000 MG, DAILY
     Route: 048
  13. TOPROL XL [Concomitant]
     Active Substance: METOPROLOL SUCCINATE
     Indication: ATRIAL FIBRILLATION
     Dosage: 25 MG, DAILY
     Route: 048
  14. MAG-OXIDE [Concomitant]
     Dosage: 400 MG, 2X/DAY
     Route: 048
  15. REGLAN [Concomitant]
     Active Substance: METOCLOPRAMIDE HYDROCHLORIDE
     Dosage: 10 MG, AS NEEDED (Q6H PRN)
     Route: 048

REACTIONS (25)
  - Malnutrition [Unknown]
  - Dyspnoea [Unknown]
  - Blood glucose increased [Unknown]
  - Haematocrit decreased [Unknown]
  - High density lipoprotein decreased [Unknown]
  - Prothrombin time prolonged [Unknown]
  - Electrocardiogram QT prolonged [Recovered/Resolved]
  - Arthralgia [Recovering/Resolving]
  - Vision blurred [Unknown]
  - Dry eye [Recovering/Resolving]
  - Joint swelling [Recovering/Resolving]
  - Visual field defect [Unknown]
  - Visual impairment [Unknown]
  - Platelet count increased [Unknown]
  - Urobilinogen urine increased [Unknown]
  - Vitreous floaters [Recovering/Resolving]
  - Photophobia [Unknown]
  - Blood iron decreased [Unknown]
  - Pyrexia [Unknown]
  - Blood phosphorus decreased [Unknown]
  - Transferrin decreased [Unknown]
  - Blood chloride decreased [Unknown]
  - Vitreous detachment [Not Recovered/Not Resolved]
  - Serum ferritin increased [Unknown]
  - Non-high-density lipoprotein cholesterol decreased [Unknown]

NARRATIVE: CASE EVENT DATE: 201503
